FAERS Safety Report 16745918 (Version 1)
Quarter: 2019Q3

REPORT INFORMATION
  Report Type: Spontaneous
  Country: US (occurrence: US)
  Receive Date: 20190709
  Receipt Date: 20190709
  Transmission Date: 20191005
  Serious: No
  Sender: FDA-Public Use
  Company Number: None

PATIENT
  Age: 59 Year
  Sex: Female
  Weight: 52.16 kg

DRUGS (1)
  1. FORTEO [Suspect]
     Active Substance: TERIPARATIDE
     Indication: OSTEOPOROSIS
     Dosage: AS DIRECTED
     Route: 058
     Dates: start: 201905

REACTIONS (6)
  - Headache [None]
  - Injection site bruising [None]
  - Confusional state [None]
  - Nausea [None]
  - Arthralgia [None]
  - Fatigue [None]
